FAERS Safety Report 4847314-9 (Version None)
Quarter: 2005Q4

REPORT INFORMATION
  Report Type: 
  Country: None (occurrence: None)
  Receive Date: 20051205
  Receipt Date: 20051205
  Transmission Date: 20060501
  Serious: No
  Sender: FDA-Public Use
  Company Number: None

PATIENT
  Sex: Female
  Weight: 75 kg

DRUGS (2)
  1. APROTININ  BAYER HEALTCARE [Suspect]
     Indication: HAEMORRHAGE
     Dosage: APPROXIMATELY 800 ML  CONTINOUSLY INFUSE   INTRACAVERNOU
     Route: 017
  2. APROTININ  BAYER HEALTCARE [Suspect]
     Indication: PROPHYLAXIS
     Dosage: APPROXIMATELY 800 ML  CONTINOUSLY INFUSE   INTRACAVERNOU
     Route: 017

REACTIONS (3)
  - HAEMODIALYSIS [None]
  - POST PROCEDURAL COMPLICATION [None]
  - RENAL FAILURE [None]
